FAERS Safety Report 20984261 (Version 1)
Quarter: 2022Q2

REPORT INFORMATION
  Report Type: Spontaneous
  Country: CN (occurrence: None)
  Receive Date: 20220621
  Receipt Date: 20220621
  Transmission Date: 20220720
  Serious: Yes (Other)
  Sender: FDA-Public Use
  Company Number: CN-ROCHE-3117609

PATIENT
  Age: 72 Year
  Sex: Female

DRUGS (8)
  1. AVASTIN [Suspect]
     Active Substance: BEVACIZUMAB
     Indication: Rectal cancer
     Dosage: 14-JAN-2021, 03-FEB-2021, 27-FEB-2021, 19-MAR-2021, 14-APR-2021, 07-MAY-2021,01-JUN-2021 AND 23-JUN-
     Route: 041
  2. AVASTIN [Suspect]
     Active Substance: BEVACIZUMAB
     Route: 041
     Dates: start: 20210719, end: 20211126
  3. AVASTIN [Suspect]
     Active Substance: BEVACIZUMAB
     Dosage: 31-DEC-2021 AND 22-JAN-2022
     Route: 041
  4. OXALIPLATIN [Concomitant]
     Active Substance: OXALIPLATIN
     Indication: Rectal cancer
     Dosage: 31-DEC-2021 AND 22-JAN-2022
     Route: 065
  5. LEUCOVORIN CALCIUM [Concomitant]
     Active Substance: LEUCOVORIN CALCIUM
     Indication: Rectal cancer
     Route: 065
  6. FLUOROURACIL [Concomitant]
     Active Substance: FLUOROURACIL
     Indication: Rectal cancer
     Route: 065
  7. CAPECITABINE [Concomitant]
     Active Substance: CAPECITABINE
     Indication: Rectal cancer
     Route: 048
     Dates: start: 20210719, end: 20211126
  8. IRINOTECAN [Concomitant]
     Active Substance: IRINOTECAN
     Route: 065

REACTIONS (1)
  - Myelosuppression [Unknown]
